FAERS Safety Report 4592948-2 (Version None)
Quarter: 2005Q1

REPORT INFORMATION
  Report Type: 
  Country: None (occurrence: None)
  Receive Date: 20050228
  Receipt Date: 20050222
  Transmission Date: 20050727
  Serious: Yes (Other)
  Sender: FDA-Public Use
  Company Number: NL-GLAXOSMITHKLINE-B0372872A

PATIENT
  Age: 40 Year
  Sex: Male

DRUGS (2)
  1. BUPROPION HYDROCHLORIDE [Suspect]
     Dosage: 150MG SEE DOSAGE TEXT
     Dates: start: 20041005, end: 20041016
  2. NO CONCURRENT MEDICATION [Concomitant]

REACTIONS (6)
  - ANXIETY [None]
  - COGNITIVE DISORDER [None]
  - HALLUCINATION, VISUAL [None]
  - PANIC ATTACK [None]
  - SUICIDAL IDEATION [None]
  - TREMOR [None]
